FAERS Safety Report 5214173-4 (Version None)
Quarter: 2007Q1

REPORT INFORMATION
  Report Type: 
  Country: None (occurrence: None)
  Receive Date: 20070122
  Receipt Date: 20070110
  Transmission Date: 20070707
  Serious: Yes (Hospitalization)
  Sender: FDA-Public Use
  Company Number: FR-JNJFOC-20061002239

PATIENT
  Age: 60 Year
  Sex: Female

DRUGS (5)
  1. REMICADE [Suspect]
     Dosage: 13 INFUSIONS PERFORMED
     Route: 042
  2. REMICADE [Suspect]
     Dosage: 10TH INFUSION
     Route: 042
  3. REMICADE [Suspect]
     Indication: RHEUMATOID ARTHRITIS
     Dosage: 9TH INFUSION
     Route: 042
  4. NOVATREX [Concomitant]
     Dosage: 6 TABLETS
     Route: 048
  5. CORTANCYL [Concomitant]
     Route: 048

REACTIONS (5)
  - DRUG INEFFECTIVE [None]
  - LUNG INFECTION [None]
  - NOCARDIOSIS [None]
  - STAPHYLOCOCCAL INFECTION [None]
  - SUBCLAVIAN VEIN THROMBOSIS [None]
